FAERS Safety Report 6190452-1 (Version None)
Quarter: 2009Q2

REPORT INFORMATION
  Report Type: 
  Country: None (occurrence: None)
  Receive Date: 20090514
  Receipt Date: 20090507
  Transmission Date: 20091009
  Serious: Yes (Life-Threatening, Hospitalization)
  Sender: FDA-Public Use
  Company Number: JP-ROXANE LABORATORIES, INC.-2009-RO-00470RO

PATIENT
  Age: 5 Year
  Sex: Male

DRUGS (14)
  1. METHOTREXATE [Suspect]
     Indication: PROPHYLACTIC CHEMOTHERAPY
     Route: 042
  2. METHOTREXATE [Suspect]
     Route: 037
  3. PREDNISONE [Suspect]
     Indication: ACUTE LYMPHOCYTIC LEUKAEMIA
  4. MERCAPTOPURINE [Suspect]
     Indication: ACUTE LYMPHOCYTIC LEUKAEMIA
  5. CYCLOPHOSPHAMIDE [Suspect]
     Indication: ACUTE LYMPHOCYTIC LEUKAEMIA
  6. DIAZEPAM [Suspect]
     Indication: ENCEPHALOPATHY
  7. DEXAMETHASONE 4MG TAB [Suspect]
     Indication: ENCEPHALOPATHY
  8. VINCRISTINE [Suspect]
     Indication: ACUTE LYMPHOCYTIC LEUKAEMIA
  9. L-ASPARAGINASE [Suspect]
     Indication: ACUTE LYMPHOCYTIC LEUKAEMIA
  10. ARABINOSYKTOSINE [Suspect]
     Indication: ACUTE LYMPHOCYTIC LEUKAEMIA
  11. CITROVORUM FACTOR RESCUE [Suspect]
     Indication: PROPHYLACTIC CHEMOTHERAPY
  12. GLYCEROL 2.6% [Suspect]
     Indication: ENCEPHALOPATHY
  13. HYDROCORTISONE [Suspect]
     Indication: PROPHYLACTIC CHEMOTHERAPY
  14. CARBAMAZEPINE [Concomitant]
     Indication: CEREBROSCLEROSIS

REACTIONS (14)
  - AMNESIA [None]
  - APHASIA [None]
  - AUTOMATISM [None]
  - CEREBROSCLEROSIS [None]
  - CLONIC CONVULSION [None]
  - ENCEPHALOPATHY [None]
  - EUPHORIC MOOD [None]
  - GRAND MAL CONVULSION [None]
  - HEADACHE [None]
  - LEUKOENCEPHALOPATHY [None]
  - LOSS OF CONSCIOUSNESS [None]
  - MEMORY IMPAIRMENT [None]
  - PYREXIA [None]
  - RESPIRATORY ARREST [None]
